FAERS Safety Report 9641917 (Version 1)
Quarter: 2013Q4

REPORT INFORMATION
  Report Type: Spontaneous
  Country: US (occurrence: US)
  Receive Date: 20131023
  Receipt Date: 20131023
  Transmission Date: 20140711
  Serious: Yes (Hospitalization, Other)
  Sender: FDA-Public Use
  Company Number: CHPA2013US015790

PATIENT
  Age: 50 Year
  Sex: Female

DRUGS (2)
  1. TRANSDERM SCOP [Suspect]
     Indication: VOMITING
     Dosage: 1 DF, Q72H
     Route: 062
     Dates: start: 20130717
  2. ZOFRAN [Concomitant]
     Indication: VOMITING
     Dosage: UNK
     Route: 048
     Dates: start: 20130716

REACTIONS (6)
  - Vomiting [Recovered/Resolved]
  - Dehydration [Recovered/Resolved]
  - Hepatic cirrhosis [Not Recovered/Not Resolved]
  - Liver disorder [Not Recovered/Not Resolved]
  - Gallbladder disorder [Recovered/Resolved]
  - Vertigo [Recovered/Resolved]
